FAERS Safety Report 4513321-9 (Version None)
Quarter: 2004Q4

REPORT INFORMATION
  Report Type: 
  Country: None (occurrence: None)
  Receive Date: 20041130
  Receipt Date: 20040804
  Transmission Date: 20050328
  Serious: No
  Sender: FDA-Public Use
  Company Number: US-BRISTOL-MYERS SQUIBB COMPANY-12660718

PATIENT
  Age: 59 Year
  Sex: Female
  Weight: 68 kg

DRUGS (11)
  1. ERBITUX [Suspect]
     Indication: RECTAL CANCER METASTATIC
     Dosage: INTERRUPTED, RESUMED AT 465 MG
     Route: 042
     Dates: start: 20040607, end: 20040607
  2. ALOXI [Concomitant]
     Indication: PREMEDICATION
     Route: 042
     Dates: start: 20040607, end: 20040607
  3. BENADRYL [Concomitant]
     Indication: PREMEDICATION
     Route: 042
     Dates: start: 20040607, end: 20040607
  4. DECADRON [Concomitant]
     Indication: PREMEDICATION
     Route: 042
     Dates: start: 20040607, end: 20040607
  5. ATIVAN [Concomitant]
  6. COMPAZINE [Concomitant]
  7. COUMADIN [Concomitant]
  8. DITROPAN XL [Concomitant]
  9. NEXIUM [Concomitant]
  10. VIOXX [Concomitant]
  11. ZYRTEC [Concomitant]

REACTIONS (7)
  - DRY SKIN [None]
  - MEDICATION ERROR [None]
  - MOUTH ULCERATION [None]
  - OVERDOSE [None]
  - RASH [None]
  - RASH PAPULAR [None]
  - VAGINAL ULCERATION [None]
